FAERS Safety Report 14343273 (Version 1)
Quarter: 2018Q1

REPORT INFORMATION
  Report Type: Spontaneous
  Country: HR (occurrence: HR)
  Receive Date: 20180102
  Receipt Date: 20180102
  Transmission Date: 20180509
  Serious: Yes (Other)
  Sender: FDA-Public Use
  Company Number: HR-PFIZER INC-2017554287

PATIENT
  Age: 65 Year
  Sex: Female

DRUGS (4)
  1. ZIPANTOLA [Concomitant]
     Active Substance: PANTOPRAZOLE SODIUM
     Indication: GASTRITIS
     Dosage: 40 MG, QD
     Route: 048
     Dates: start: 201511, end: 201511
  2. CONTROLOC [Suspect]
     Active Substance: PANTOPRAZOLE SODIUM
     Indication: GASTRITIS
     Dosage: 20 MG, QD
     Route: 048
     Dates: start: 200901, end: 201210
  3. NORMABEL [Concomitant]
     Active Substance: DIAZEPAM
     Dosage: 2 MG, UNK
     Route: 048
  4. BETAHISTIN PHARMAS [Concomitant]
     Indication: CERVICOBRACHIAL SYNDROME
     Dosage: 24 MG, UNK
     Route: 048

REACTIONS (4)
  - Gastrointestinal sounds abnormal [Not Recovered/Not Resolved]
  - Diarrhoea [Not Recovered/Not Resolved]
  - Abdominal pain [Not Recovered/Not Resolved]
  - Abdominal discomfort [Not Recovered/Not Resolved]

NARRATIVE: CASE EVENT DATE: 201109
